FAERS Safety Report 16736041 (Version 3)
Quarter: 2020Q1

REPORT INFORMATION
  Report Type: Spontaneous
  Country: US (occurrence: US)
  Receive Date: 20190823
  Receipt Date: 20200217
  Transmission Date: 20200409
  Serious: Yes (Life-Threatening, Hospitalization, Disabling, Other)
  Sender: FDA-Public Use
  Company Number: US-DSJP-DSU-2019-131443

PATIENT

DRUGS (7)
  1. VALSARTAN HCT [Suspect]
     Active Substance: HYDROCHLOROTHIAZIDE\VALSARTAN
     Indication: HYPERTENSION
     Dosage: 320/12.5 MG, QD
     Route: 048
     Dates: start: 2019, end: 2019
  2. TRIBENZOR [Suspect]
     Active Substance: AMLODIPINE BESYLATE\HYDROCHLOROTHIAZIDE\OLMESARTAN MEDOXOMIL
     Dosage: 40/5/12.5,MG , QD
     Route: 048
     Dates: start: 2019
  3. TRIBENZOR [Suspect]
     Active Substance: AMLODIPINE BESYLATE\HYDROCHLOROTHIAZIDE\OLMESARTAN MEDOXOMIL
     Dosage: 40/5/12.5,MG QD
     Route: 048
     Dates: start: 2017, end: 2019
  4. OLMESARTAN MEDOXOMIL_AMLODIPINE_HYDROCHLOROTHIAZIDE [Suspect]
     Active Substance: AMLODIPINE\HYDROCHLOROTHIAZIDE\OLMESARTAN
     Indication: HYPERTENSION
     Dosage: 40/5/12.5 MG, QD
     Route: 048
     Dates: start: 2017, end: 2017
  5. AMLODIPINE [Suspect]
     Active Substance: AMLODIPINE BESYLATE
     Indication: HYPERTENSION
     Dosage: 7.5 MG, QD
     Route: 048
     Dates: start: 2019, end: 2019
  6. BENICAR [Suspect]
     Active Substance: OLMESARTAN MEDOXOMIL
     Indication: HYPERTENSION
     Dosage: UNK
     Route: 065
     Dates: start: 2000
  7. TRIBENZOR [Suspect]
     Active Substance: AMLODIPINE BESYLATE\HYDROCHLOROTHIAZIDE\OLMESARTAN MEDOXOMIL
     Indication: HYPERTENSION
     Dosage: 40/5/12.5MG , QD
     Route: 048
     Dates: start: 2009, end: 2017

REACTIONS (10)
  - Hemiplegia [Unknown]
  - Muscle spasms [Recovered/Resolved]
  - Cerebrovascular accident [Unknown]
  - Balance disorder [Unknown]
  - Drug ineffective [Unknown]
  - Gait disturbance [Unknown]
  - Prothrombin time [Unknown]
  - Malaise [Recovered/Resolved]
  - Urinary incontinence [Unknown]
  - Depression [Unknown]

NARRATIVE: CASE EVENT DATE: 2017
